FAERS Safety Report 7809225-6 (Version None)
Quarter: 2011Q4

REPORT INFORMATION
  Report Type: 
  Country: None (occurrence: None)
  Receive Date: 20111012
  Receipt Date: 20111006
  Transmission Date: 20120403
  Serious: No
  Sender: FDA-Public Use
  Company Number: BR-ROCHE-782387

PATIENT
  Sex: Female
  Weight: 69.1 kg

DRUGS (2)
  1. HERCEPTIN [Suspect]
     Indication: BREAST CANCER METASTATIC
     Dosage: LAST DOSE PRIOR TO SAE: 25 APRIL 2011
     Route: 042
     Dates: start: 20100707, end: 20110609
  2. BLINDED PERTUZUMAB [Suspect]
     Indication: BREAST CANCER METASTATIC
     Dosage: LAST DOSE PRIOR TO SAE: 25 APRIL 2011,PERMANENTLY DISCONTINUED
     Route: 042
     Dates: start: 20100707, end: 20110609

REACTIONS (1)
  - LEFT VENTRICULAR DYSFUNCTION [None]
